FAERS Safety Report 7386340-5 (Version None)
Quarter: 2011Q1

REPORT INFORMATION
  Report Type: 
  Country: None (occurrence: None)
  Receive Date: 20110331
  Receipt Date: 20110318
  Transmission Date: 20110831
  Serious: Yes (Hospitalization)
  Sender: FDA-Public Use
  Company Number: PHHY2011FR22750

PATIENT
  Sex: Female

DRUGS (13)
  1. ACETAMINOPHEN [Concomitant]
     Indication: BRONCHOPNEUMOPATHY
     Dosage: 500 MG
     Dates: start: 20110107
  2. DERINOX [Concomitant]
     Indication: BRONCHOPNEUMOPATHY
     Dosage: UNK
     Dates: start: 20110107
  3. ACETYLCYSTEINE [Concomitant]
     Indication: BRONCHOPNEUMOPATHY
     Dosage: 3 DF, TID
     Route: 048
     Dates: start: 20110107
  4. IKARAN LP [Concomitant]
     Dosage: 5 MG, BID
  5. OLMIFON [Concomitant]
     Dosage: 1 DF
  6. AMOXICILLIN AND CLAVULANATE POTASSIUM [Suspect]
     Indication: BRONCHOPNEUMOPATHY
     Dosage: 1 G, TID
     Dates: start: 20110107, end: 20110109
  7. VOLTARENE LP [Suspect]
     Dosage: 100 MG
     Route: 048
  8. PREVISCAN [Suspect]
     Dosage: 20 MG
     Route: 048
     Dates: end: 20110109
  9. PREDNISOLONE [Suspect]
     Indication: BRONCHOPNEUMOPATHY
     Dosage: 20 MG
     Route: 048
     Dates: start: 20110107, end: 20110109
  10. AERIUS [Concomitant]
     Dosage: 1 DF
  11. FENOFIBRATE [Suspect]
     Dosage: 320 MG DAILY
     Route: 048
  12. JANUVIA [Concomitant]
  13. SERETIDE [Concomitant]
     Indication: BRONCHOPNEUMOPATHY
     Dosage: 250 MCG
     Dates: start: 20110107

REACTIONS (1)
  - INTERNATIONAL NORMALISED RATIO INCREASED [None]
